FAERS Safety Report 5255605-5 (Version None)
Quarter: 2007Q1

REPORT INFORMATION
  Report Type: 
  Country: None (occurrence: None)
  Receive Date: 20070305
  Receipt Date: 20070227
  Transmission Date: 20070707
  Serious: Yes (Hospitalization)
  Sender: FDA-Public Use
  Company Number: RO-BOEHRINGER INGELHEIM GMBH, GERMANY-2006-AP-00356AP

PATIENT
  Sex: Male
  Weight: 40 kg

DRUGS (7)
  1. APTIVUS [Suspect]
     Indication: HIV INFECTION CDC CATEGORY C3
     Dosage: TPV/RTV 2 CPS BID
     Route: 048
     Dates: start: 20060702, end: 20060712
  2. APTIVUS [Suspect]
     Route: 048
     Dates: start: 20060723, end: 20060728
  3. STOCRIN [Concomitant]
     Indication: HIV INFECTION
  4. STOCRIN [Concomitant]
     Indication: HIV INFECTION CDC CATEGORY C3
  5. FUZEON [Concomitant]
     Indication: HIV INFECTION
  6. VIREA [Concomitant]
     Indication: HIV INFECTION
  7. ZERIT [Concomitant]
     Indication: HIV INFECTION

REACTIONS (7)
  - AGITATION [None]
  - COUGH [None]
  - INSOMNIA [None]
  - PHOTOSENSITIVITY REACTION [None]
  - PRURITUS [None]
  - PYREXIA [None]
  - RASH GENERALISED [None]
